FAERS Safety Report 5976697-1 (Version None)
Quarter: 2008Q4

REPORT INFORMATION
  Report Type: 
  Country: None (occurrence: None)
  Receive Date: 20081201
  Receipt Date: 20081201
  Transmission Date: 20090506
  Serious: No
  Sender: FDA-Public Use
  Company Number: None

PATIENT
  Sex: Female
  Weight: 73.0291 kg

DRUGS (1)
  1. AMLODIPINE [Suspect]
     Indication: HYPERTENSION
     Dosage: 10MG 1 TAB PO
     Route: 048
     Dates: start: 20070417, end: 20080718

REACTIONS (3)
  - DYSPEPSIA [None]
  - PRODUCT QUALITY ISSUE [None]
  - THROAT IRRITATION [None]
